FAERS Safety Report 9163194 (Version 1)
Quarter: 2013Q1

REPORT INFORMATION
  Report Type: Spontaneous
  Country: US (occurrence: None)
  Receive Date: 20130313
  Receipt Date: 20130313
  Transmission Date: 20140127
  Serious: Yes (Other)
  Sender: FDA-Public Use
  Company Number: None

PATIENT
  Age: 80 Year
  Sex: Female
  Weight: 50.35 kg

DRUGS (2)
  1. BACTRIM [Suspect]
     Indication: URINARY TRACT INFECTION
     Dates: start: 20130211, end: 20130220
  2. BACTRIM [Suspect]
     Indication: CELLULITIS
     Dates: start: 20130211, end: 20130220

REACTIONS (6)
  - Swollen tongue [None]
  - Dyspnoea [None]
  - Oedema mouth [None]
  - Lip swelling [None]
  - Swelling face [None]
  - Cerebrovascular accident [None]
